FAERS Safety Report 11770439 (Version 2)
Quarter: 2015Q4

REPORT INFORMATION
  Report Type: Spontaneous
  Country: US (occurrence: US)
  Receive Date: 20151123
  Receipt Date: 20151123
  Transmission Date: 20160304
  Serious: No
  Sender: FDA-Public Use
  Company Number: US-PERRIGO-15US006893

PATIENT
  Age: 85 Year
  Sex: Male
  Weight: 58.96 kg

DRUGS (2)
  1. POLYETHYLENE GLYCOL 3350. [Suspect]
     Active Substance: POLYETHYLENE GLYCOL 3350
     Indication: CONSTIPATION
     Dosage: 8.5 G, QD
     Route: 048
     Dates: start: 201505, end: 201505
  2. POLYETHYLENE GLYCOL 3350. [Suspect]
     Active Substance: POLYETHYLENE GLYCOL 3350
     Dosage: 8.5 G, QD
     Route: 048
     Dates: start: 20150629, end: 20150630

REACTIONS (3)
  - Underdose [Recovered/Resolved]
  - Dizziness [Recovering/Resolving]
  - Expired product administered [Recovered/Resolved]

NARRATIVE: CASE EVENT DATE: 201505
